FAERS Safety Report 8129532-X (Version None)
Quarter: 2012Q1

REPORT INFORMATION
  Report Type: 
  Country: None (occurrence: None)
  Receive Date: 20120103
  Receipt Date: 20111107
  Transmission Date: 20120608
  Serious: No
  Sender: FDA-Public Use
  Company Number: AE-2011-003159

PATIENT
  Age: 43 Year
  Sex: Male
  Weight: 82.5547 kg

DRUGS (8)
  1. ACYCLOVIR [Concomitant]
  2. INCIVEK [Suspect]
     Dosage: 3375 MG (1125 MG, 1 IN 8 HR), ORAL
     Route: 048
     Dates: start: 20111030
  3. PEGASYS [Concomitant]
  4. RIBAVIRIN [Concomitant]
  5. ISENTRESS [Concomitant]
  6. VIREAD [Concomitant]
  7. SUSTIVA [Concomitant]
  8. COMBIVIR [Concomitant]

REACTIONS (2)
  - ABDOMINAL DISCOMFORT [None]
  - NAUSEA [None]
